FAERS Safety Report 12958510 (Version 3)
Quarter: 2016Q4

REPORT INFORMATION
  Report Type: Spontaneous
  Country: JP (occurrence: JP)
  Receive Date: 20161121
  Receipt Date: 20161223
  Transmission Date: 20170207
  Serious: Yes (Other)
  Sender: FDA-Public Use
  Company Number: JP-ROCHE-1855928

PATIENT
  Age: 83 Year
  Sex: Male

DRUGS (4)
  1. LUCENTIS [Suspect]
     Active Substance: RANIBIZUMAB
     Indication: AGE-RELATED MACULAR DEGENERATION
  2. AFLIBERCEPT [Concomitant]
     Active Substance: AFLIBERCEPT
     Indication: PRODUCT USED FOR UNKNOWN INDICATION
     Dosage: UNK
     Route: 031
  3. LUCENTIS [Suspect]
     Active Substance: RANIBIZUMAB
     Indication: POLYPOIDAL CHOROIDAL VASCULOPATHY
     Dosage: UNK
     Route: 031
     Dates: start: 20131119
  4. BERAPROST [Concomitant]
     Active Substance: BERAPROST
     Indication: VENOUS THROMBOSIS
     Dosage: UNK
     Route: 048

REACTIONS (13)
  - Age-related macular degeneration [Unknown]
  - Vitreous haemorrhage [Unknown]
  - Vitreous detachment [Unknown]
  - Visual impairment [Unknown]
  - Blindness unilateral [Unknown]
  - Retinal oedema [Unknown]
  - Subretinal fluid [Unknown]
  - Cerebral infarction [Unknown]
  - Polypoidal choroidal vasculopathy [Unknown]
  - Retinal haemorrhage [Unknown]
  - Maculopathy [Unknown]
  - Visual acuity reduced [Unknown]
  - Visual field defect [Unknown]

NARRATIVE: CASE EVENT DATE: 20131120
